FAERS Safety Report 5207059-2 (Version None)
Quarter: 2007Q1

REPORT INFORMATION
  Report Type: 
  Country: None (occurrence: None)
  Receive Date: 20070112
  Receipt Date: 20070104
  Transmission Date: 20070707
  Serious: Yes (Other)
  Sender: FDA-Public Use
  Company Number: US-JNJFOC-20070101406

PATIENT
  Sex: Female
  Weight: 68.04 kg

DRUGS (5)
  1. EXTRA STRENGTH TYLENOL [Suspect]
  2. EXTRA STRENGTH TYLENOL [Suspect]
     Indication: PYREXIA
     Dosage: 1000MG EVER 4 HOURS AS NEEDED
  3. ADVIL [Suspect]
     Indication: PAIN
     Dosage: ^1 Q 6 H PRN INTERMITTENTLY^
  4. AZITHROMYCIN [Concomitant]
     Indication: PNEUMONIA
     Dosage: 1 QD TIMES 5
  5. LEVOXYL [Concomitant]
     Indication: HYPOTHYROIDISM

REACTIONS (1)
  - HEPATITIS [None]
